FAERS Safety Report 11093451 (Version 1)
Quarter: 2015Q2

REPORT INFORMATION
  Report Type: Spontaneous
  Country: US (occurrence: None)
  Receive Date: 20150428
  Receipt Date: 20150428
  Transmission Date: 20150821
  Serious: Yes (Hospitalization)
  Sender: FDA-Public Use
  Company Number: PHEH2014US024815

PATIENT
  Age: 62 Year
  Sex: Female
  Weight: 72 kg

DRUGS (15)
  1. LEVOTHYROXINE SODIUM. [Concomitant]
     Active Substance: LEVOTHYROXINE SODIUM
  2. MODAFINIL. [Concomitant]
     Active Substance: MODAFINIL
  3. BACLOFEN. [Concomitant]
     Active Substance: BACLOFEN
  4. VICODIN [Concomitant]
     Active Substance: ACETAMINOPHEN\HYDROCODONE BITARTRATE
  5. VITAMIN D3 (COLECALCIFEROL) CAPSULE [Concomitant]
  6. GABAPENTIN. [Concomitant]
     Active Substance: GABAPENTIN
  7. ZOCOR [Concomitant]
     Active Substance: SIMVASTATIN
  8. VENLAFAXINE HCL (VENLAFAXINE HYDROCHLORIDE) ??? [Concomitant]
  9. GILENYA [Suspect]
     Active Substance: FINGOLIMOD HYDROCHLORIDE
     Indication: RELAPSING-REMITTING MULTIPLE SCLEROSIS
     Route: 048
     Dates: start: 20110920, end: 20141117
  10. WELLBUTRIN (BUPROPION HYDROCHLORIDE)? [Concomitant]
  11. AMPYRA [Concomitant]
     Active Substance: DALFAMPRIDINE
  12. KLONOPIN (CLONAZEPAM)? [Concomitant]
  13. NAPROXEN ?? [Concomitant]
  14. MIRTAZAPINE. [Concomitant]
     Active Substance: MIRTAZAPINE
  15. OXYBUTYNIN CHLORIDE (OXYBUTYNIN HYDORCHLORIDE) [Concomitant]

REACTIONS (6)
  - Folliculitis [None]
  - Pain [None]
  - Pruritus [None]
  - Cryptococcal cutaneous infection [None]
  - CD4 lymphocytes decreased [None]
  - Purpura [None]

NARRATIVE: CASE EVENT DATE: 201409
